FAERS Safety Report 6456732-7 (Version None)
Quarter: 2009Q4

REPORT INFORMATION
  Report Type: 
  Country: None (occurrence: None)
  Receive Date: 20091124
  Receipt Date: 20091124
  Transmission Date: 20100525
  Serious: Yes (Life-Threatening, Hospitalization, Disabling)
  Sender: FDA-Public Use
  Company Number: None

PATIENT
  Age: 48 Year
  Sex: Female
  Weight: 68.9467 kg

DRUGS (1)
  1. LOESTRIN 24 FE [Suspect]
     Dosage: PO
     Route: 048

REACTIONS (2)
  - MYALGIA [None]
  - THROMBOSIS [None]
